FAERS Safety Report 19619370 (Version 1)
Quarter: 2021Q3

REPORT INFORMATION
  Report Type: Spontaneous
  Country: US (occurrence: US)
  Receive Date: 20210728
  Receipt Date: 20210728
  Transmission Date: 20211014
  Serious: No
  Sender: FDA-Public Use
  Company Number: US-ROCHE-2691473

PATIENT
  Age: 43 Year
  Sex: Female

DRUGS (2)
  1. DEXMETHASONE [Concomitant]
     Active Substance: DEXAMETHASONE
  2. XELODA [Suspect]
     Active Substance: CAPECITABINE
     Indication: PRODUCT USED FOR UNKNOWN INDICATION
     Dosage: FREQUENCY: OTHER
     Route: 048
     Dates: start: 202004

REACTIONS (1)
  - Arthralgia [Unknown]

NARRATIVE: CASE EVENT DATE: 20200929
